FAERS Safety Report 5828153-9 (Version None)
Quarter: 2008Q3

REPORT INFORMATION
  Report Type: 
  Country: None (occurrence: None)
  Receive Date: 20080731
  Receipt Date: 20080721
  Transmission Date: 20090109
  Serious: Yes (Hospitalization)
  Sender: FDA-Public Use
  Company Number: US-JNJFOC-20080705469

PATIENT
  Sex: Female
  Weight: 92.99 kg

DRUGS (6)
  1. TOPAMAX [Suspect]
     Indication: BIPOLAR DISORDER
     Route: 048
  2. DEPAKOTE [Concomitant]
     Indication: BIPOLAR DISORDER
     Route: 048
  3. ZOCOR [Concomitant]
     Indication: BLOOD CHOLESTEROL ABNORMAL
     Route: 048
  4. METFORMIN HCL [Concomitant]
     Indication: DIABETES MELLITUS
     Route: 048
  5. SYNTHROID [Concomitant]
     Indication: THYROID DISORDER
  6. XANAX [Concomitant]
     Indication: ANXIETY

REACTIONS (7)
  - AMNESIA [None]
  - ARTHRITIS [None]
  - CARTILAGE INJURY [None]
  - INGUINAL HERNIA REPAIR [None]
  - NEPHROLITHIASIS [None]
  - RENAL PAIN [None]
  - WEIGHT DECREASED [None]
